FAERS Safety Report 10425109 (Version 2)
Quarter: 2014Q4

REPORT INFORMATION
  Report Type: Spontaneous
  Country: CN (occurrence: CN)
  Receive Date: 20140902
  Receipt Date: 20141008
  Transmission Date: 20150528
  Serious: Yes (Hospitalization, Other)
  Sender: FDA-Public Use
  Company Number: CN-GLAXOSMITHKLINE-B1028313A

PATIENT

DRUGS (2)
  1. INTRON A [Suspect]
     Active Substance: INTERFERON ALFA-2B
     Indication: HEPATITIS B
     Route: 065
     Dates: start: 2013, end: 201404
  2. HEPTODIN [Suspect]
     Active Substance: LAMIVUDINE
     Indication: HEPATITIS B
     Route: 048
     Dates: start: 2013

REACTIONS (4)
  - Measles [Recovered/Resolved]
  - Suspected counterfeit product [Unknown]
  - Product quality issue [Unknown]
  - Bronchopneumonia [Recovering/Resolving]

NARRATIVE: CASE EVENT DATE: 2014
